FAERS Safety Report 13515231 (Version 3)
Quarter: 2017Q2

REPORT INFORMATION
  Report Type: Spontaneous
  Country: US (occurrence: US)
  Receive Date: 20170504
  Receipt Date: 20170526
  Transmission Date: 20170830
  Serious: Yes (Hospitalization)
  Sender: FDA-Public Use
  Company Number: US-009507513-1704USA014393

PATIENT
  Age: 81 Year
  Sex: Female
  Weight: 82.54 kg

DRUGS (3)
  1. BELSOMRA [Suspect]
     Active Substance: SUVOREXANT
     Dosage: 20 MG, QD
     Route: 048
  2. BELSOMRA [Suspect]
     Active Substance: SUVOREXANT
     Dosage: 15 MG, QD
     Route: 048
     Dates: start: 201601
  3. BELSOMRA [Suspect]
     Active Substance: SUVOREXANT
     Indication: INSOMNIA
     Dosage: 10 MG, QD
     Route: 048
     Dates: start: 201601, end: 201703

REACTIONS (4)
  - Abnormal sleep-related event [Recovered/Resolved]
  - Somnambulism [Recovered/Resolved]
  - Poor quality sleep [Unknown]
  - Restlessness [Unknown]

NARRATIVE: CASE EVENT DATE: 201701
